FAERS Safety Report 26027215 (Version 1)
Quarter: 2025Q4

REPORT INFORMATION
  Report Type: Spontaneous
  Country: US (occurrence: None)
  Receive Date: 20251111
  Receipt Date: 20251111
  Transmission Date: 20260118
  Serious: Yes (Death)
  Sender: FDA-CTU
  Company Number: None

PATIENT
  Age: 24 Year
  Sex: Female

DRUGS (2)
  1. OLANZAPINE [Suspect]
     Active Substance: OLANZAPINE
     Indication: Mental disorder
     Dosage: 1 TABLET ORAL
     Route: 048
     Dates: start: 20250909, end: 20251019
  2. HYDROXYZINE HYDROCHLORIDE [Suspect]
     Active Substance: HYDROXYZINE HYDROCHLORIDE
     Indication: Mental disorder
     Dosage: 1 TABLET AS NEEDED ORAL
     Route: 048

REACTIONS (1)
  - Completed suicide [None]

NARRATIVE: CASE EVENT DATE: 20251019
